FAERS Safety Report 15599583 (Version 1)
Quarter: 2018Q4

REPORT INFORMATION
  Report Type: Other
  Country: AE (occurrence: AE)
  Receive Date: 20181108
  Receipt Date: 20181108
  Transmission Date: 20190205
  Serious: Yes (Hospitalization)
  Sender: FDA-Public Use
  Company Number: AE-B. BRAUN MEDICAL INC.-2058611

PATIENT
  Age: 38 Year
  Sex: Male

DRUGS (1)
  1. METRONIDAZOLE INJECTION USP (5 MG/ML) IN PAB? PLASTIC CONTAINER (NDA 0 [Suspect]
     Active Substance: METRONIDAZOLE

REACTIONS (5)
  - Neurotoxicity [None]
  - Dysarthria [None]
  - Ataxia [None]
  - Dysphonia [None]
  - Dysphagia [None]
